FAERS Safety Report 20279335 (Version 1)
Quarter: 2021Q4

REPORT INFORMATION
  Report Type: Spontaneous
  Country: US (occurrence: None)
  Receive Date: 20211230
  Receipt Date: 20211230
  Transmission Date: 20220303
  Serious: Yes (Hospitalization)
  Sender: FDA-Public Use
  Company Number: None

PATIENT
  Age: 66 Year
  Sex: Female

DRUGS (1)
  1. SUNITINIB [Suspect]
     Active Substance: SUNITINIB
     Indication: Renal cancer
     Dosage: FREQUENCY : DAILY?
     Route: 048
     Dates: start: 202108, end: 202112

REACTIONS (1)
  - Red blood cell count decreased [None]

NARRATIVE: CASE EVENT DATE: 20211130
